FAERS Safety Report 9460494 (Version 1)
Quarter: 2013Q3

REPORT INFORMATION
  Report Type: Spontaneous
  Country: US (occurrence: US)
  Receive Date: 20130815
  Receipt Date: 20130815
  Transmission Date: 20140515
  Serious: Yes (Other)
  Sender: FDA-Public Use
  Company Number: CHPA2013US012826

PATIENT
  Age: 76 Year
  Sex: Female

DRUGS (4)
  1. PERDIEM OVERNIGHT RELIEF PILLS [Suspect]
     Indication: MEGACOLON
     Dosage: UNK, UNK
     Route: 048
  2. PERDIEM OVERNIGHT RELIEF PILLS [Suspect]
     Indication: DYSPEPSIA
  3. PERDIEM OVERNIGHT RELIEF PILLS [Suspect]
     Indication: IMPAIRED GASTRIC EMPTYING
  4. SYNTHROID [Concomitant]
     Indication: HYPOTHYROIDISM
     Dosage: UNK, UNK
     Dates: start: 1978

REACTIONS (4)
  - Barrett^s oesophagus [Unknown]
  - Seasonal allergy [Unknown]
  - Osteoporosis [Unknown]
  - Off label use [Unknown]
